APPROVED DRUG PRODUCT: MEMANTINE HYDROCHLORIDE
Active Ingredient: MEMANTINE HYDROCHLORIDE
Strength: 10MG
Dosage Form/Route: TABLET;ORAL
Application: A207236 | Product #002
Applicant: LANNETT CO INC
Approved: Nov 10, 2016 | RLD: No | RS: No | Type: DISCN